FAERS Safety Report 9628365 (Version 2)
Quarter: 2013Q4

REPORT INFORMATION
  Report Type: Report from Study
  Country: IE (occurrence: IE)
  Receive Date: 20131017
  Receipt Date: 20131017
  Transmission Date: 20140711
  Serious: Yes (Hospitalization)
  Sender: FDA-Public Use
  Company Number: IE-ROCHE-1262427

PATIENT
  Sex: Female

DRUGS (10)
  1. TRASTUZUMAB EMTANSINE [Suspect]
     Indication: BREAST CANCER
     Route: 042
     Dates: start: 20121012, end: 20130222
  2. TRASTUZUMAB EMTANSINE [Suspect]
     Route: 042
     Dates: start: 20130322, end: 20130705
  3. TRASTUZUMAB [Suspect]
     Indication: BREAST CANCER
     Route: 065
     Dates: start: 20130807
  4. EVEROLIMUS [Suspect]
     Indication: BREAST CANCER
     Route: 048
     Dates: start: 20130807
  5. VINORELBINE [Suspect]
     Indication: BREAST CANCER
     Route: 065
     Dates: start: 20130807
  6. VANCOMYCIN [Suspect]
     Indication: EMPYEMA
     Route: 065
  7. LOSARTAN [Concomitant]
     Route: 048
  8. ROSUVASTATIN [Concomitant]
     Route: 048
  9. ESOMEPRAZOLE [Concomitant]
     Route: 048
  10. DEXAMETHASONE [Concomitant]
     Route: 048

REACTIONS (3)
  - Empyema [Unknown]
  - Thrombocytopenia [Recovering/Resolving]
  - Disease progression [Unknown]
